FAERS Safety Report 23953788 (Version 1)
Quarter: 2024Q2

REPORT INFORMATION
  Report Type: Other
  Country: US (occurrence: None)
  Receive Date: 20240609
  Receipt Date: 20240609
  Transmission Date: 20240715
  Serious: Yes (Hospitalization)
  Sender: FDA-Public Use
  Company Number: US-ROCHE-3577635

PATIENT
  Age: 50 Year
  Sex: Female
  Weight: 61.29 kg

DRUGS (5)
  1. OCREVUS [Suspect]
     Active Substance: OCRELIZUMAB
     Indication: Multiple sclerosis
     Dosage: 300MG. ONCE IN A14 DAY
     Route: 042
     Dates: start: 20230413
  2. AVONEX [Concomitant]
     Active Substance: INTERFERON BETA-1A
  3. TYSABRI [Concomitant]
     Active Substance: NATALIZUMAB
  4. TECFIDERA [Concomitant]
     Active Substance: DIMETHYL FUMARATE
  5. MAYZENT [Concomitant]
     Active Substance: SIPONIMOD

REACTIONS (4)
  - Appendicitis [Recovered/Resolved]
  - Colostomy closure [Unknown]
  - Large intestine perforation [Recovering/Resolving]
  - Pain [Recovered/Resolved]

NARRATIVE: CASE EVENT DATE: 20231228
